FAERS Safety Report 5137515-7 (Version None)
Quarter: 2006Q4

REPORT INFORMATION
  Report Type: 
  Country: None (occurrence: None)
  Receive Date: 20061030
  Receipt Date: 20051114
  Transmission Date: 20070319
  Serious: No
  Sender: FDA-Public Use
  Company Number: US-GLAXOSMITHKLINE-A0582199A

PATIENT
  Age: 71 Year
  Sex: Male

DRUGS (6)
  1. ADVAIR HFA [Suspect]
     Indication: ASTHMA
     Dosage: 1PUFF PER DAY
     Route: 055
  2. BENICAR [Concomitant]
  3. ALLOPURINOL [Concomitant]
  4. VITAMIN [Concomitant]
  5. ASPIRIN [Concomitant]
  6. ZETIA [Concomitant]

REACTIONS (5)
  - DYSPNOEA [None]
  - ILL-DEFINED DISORDER [None]
  - PHARMACEUTICAL PRODUCT COMPLAINT [None]
  - RESPIRATORY TRACT CONGESTION [None]
  - UNDERDOSE [None]
